FAERS Safety Report 23079276 (Version 1)
Quarter: 2023Q4

REPORT INFORMATION
  Report Type: Spontaneous
  Country: FR (occurrence: FR)
  Receive Date: 20231018
  Receipt Date: 20231018
  Transmission Date: 20240110
  Serious: Yes (Hospitalization)
  Sender: FDA-Public Use
  Company Number: None

PATIENT
  Age: 55 Year
  Sex: Male
  Weight: 80 kg

DRUGS (15)
  1. FLUOROURACIL [Suspect]
     Active Substance: FLUOROURACIL
     Indication: Adenocarcinoma of colon
     Dosage: 2400 MG/M2 (4 COURSES)
     Route: 042
     Dates: start: 20200817, end: 20200928
  2. FLUOROURACIL [Suspect]
     Active Substance: FLUOROURACIL
     Dosage: 2400 MG/M2
     Route: 042
     Dates: start: 20210208, end: 20210517
  3. FLUOROURACIL [Suspect]
     Active Substance: FLUOROURACIL
     Dosage: 2400 MG/M2 (4 COURSES)
     Route: 042
     Dates: start: 20211102, end: 20211214
  4. FLUOROURACIL [Suspect]
     Active Substance: FLUOROURACIL
     Dosage: 2400 MG/M2  (4 COURSES)
     Route: 042
     Dates: start: 20220308, end: 20220426
  5. FLUOROURACIL [Suspect]
     Active Substance: FLUOROURACIL
     Dosage: 2400 MG/M2  (4 COURSES)
     Route: 042
     Dates: start: 20220928, end: 20221109
  6. FLUOROURACIL [Suspect]
     Active Substance: FLUOROURACIL
     Dosage: 2400 MG/M2  (4 COURSES)
     Route: 042
     Dates: start: 20230102, end: 20230213
  7. IRINOTECAN HYDROCHLORIDE [Suspect]
     Active Substance: IRINOTECAN HYDROCHLORIDE
     Indication: Adenocarcinoma of colon
     Dosage: 180 MG/M2 (4 COURSES)
     Route: 042
     Dates: start: 20211102, end: 20211214
  8. IRINOTECAN HYDROCHLORIDE [Suspect]
     Active Substance: IRINOTECAN HYDROCHLORIDE
     Dosage: 180 MG/M2  (4 COURSES)
     Route: 042
     Dates: start: 20220308, end: 20220426
  9. IRINOTECAN HYDROCHLORIDE [Suspect]
     Active Substance: IRINOTECAN HYDROCHLORIDE
     Dosage: 180 MG/M2  (4 COURSES)
     Route: 042
     Dates: start: 20220928, end: 20221109
  10. IRINOTECAN HYDROCHLORIDE [Suspect]
     Active Substance: IRINOTECAN HYDROCHLORIDE
     Dosage: 180 MG/M2  (4 COURSES)
     Route: 042
     Dates: start: 20230102, end: 20230213
  11. VECTIBIX [Suspect]
     Active Substance: PANITUMUMAB
     Indication: Adenocarcinoma of colon
     Dosage: 6 MG/KG (4 COURSES)
     Route: 042
     Dates: start: 20211102, end: 20211214
  12. VECTIBIX [Suspect]
     Active Substance: PANITUMUMAB
     Dosage: 6 MG/KG (4 COURSES)
     Route: 042
     Dates: start: 20220308, end: 20220426
  13. VECTIBIX [Suspect]
     Active Substance: PANITUMUMAB
     Dosage: 6 MG/KG  (4 COURSES)
     Route: 042
     Dates: start: 20220928, end: 20221109
  14. VECTIBIX [Suspect]
     Active Substance: PANITUMUMAB
     Dosage: 6 MG/KG  (4 COURSES)
     Route: 042
     Dates: start: 20230102, end: 20230213
  15. OXALIPLATIN [Concomitant]
     Active Substance: OXALIPLATIN
     Indication: Adenocarcinoma of colon
     Dosage: 4 COURSES
     Dates: start: 20200817, end: 20200928

REACTIONS (1)
  - Intestinal perforation [Recovered/Resolved]

NARRATIVE: CASE EVENT DATE: 20230304
